FAERS Safety Report 20746619 (Version 1)
Quarter: 2022Q2

REPORT INFORMATION
  Report Type: Spontaneous
  Country: US (occurrence: US)
  Receive Date: 20220425
  Receipt Date: 20220425
  Transmission Date: 20220721
  Serious: Yes (Death, Other)
  Sender: FDA-Public Use
  Company Number: US-MEITHEAL-2022MPLIT00051

PATIENT
  Age: 22 Month
  Sex: Male

DRUGS (1)
  1. BUSULFAN [Suspect]
     Active Substance: BUSULFAN
     Indication: Neuroblastoma
     Dosage: SIX ROUNDS OF CHEMOTHERAPY
     Route: 065

REACTIONS (4)
  - Respiratory distress [Fatal]
  - Alveolar proteinosis [Fatal]
  - Interstitial lung disease [Fatal]
  - Hypoxia [Fatal]
